FAERS Safety Report 12272687 (Version 13)
Quarter: 2018Q4

REPORT INFORMATION
  Report Type: Report from Study
  Country: US (occurrence: US)
  Receive Date: 20160415
  Receipt Date: 20181223
  Transmission Date: 20190204
  Serious: Yes (Hospitalization, Other)
  Sender: FDA-Public Use
  Company Number: US-ACTELION-A-US2016-131445

PATIENT
  Age: 68 Year
  Sex: Female
  Weight: 46.26 kg

DRUGS (13)
  1. OPSUMIT [Suspect]
     Active Substance: MACITENTAN
     Dosage: 10 MG, QD
     Route: 048
  2. DILTIAZEM. [Concomitant]
     Active Substance: DILTIAZEM
  3. ESCITALOPRAM [Concomitant]
     Active Substance: ESCITALOPRAM OXALATE
  4. TRIFLURIDINE. [Concomitant]
     Active Substance: TRIFLURIDINE
  5. GABAPENTIN. [Concomitant]
     Active Substance: GABAPENTIN
  6. REMODULIN [Suspect]
     Active Substance: TREPROSTINIL
     Indication: PRODUCT USED FOR UNKNOWN INDICATION
     Route: 065
  7. OXYCODONE AND ACETAMINOPHEN [Concomitant]
     Active Substance: ACETAMINOPHEN\OXYCODONE HYDROCHLORIDE
  8. VALACYCLOVIR HCL [Concomitant]
     Active Substance: VALACYCLOVIR HYDROCHLORIDE
  9. AMOXICILLIN. [Concomitant]
     Active Substance: AMOXICILLIN
  10. OPSUMIT [Suspect]
     Active Substance: MACITENTAN
     Indication: PULMONARY HYPERTENSION
     Dosage: 10 MG, QD
     Route: 048
  11. CARDIZEM [Concomitant]
     Active Substance: DILTIAZEM HYDROCHLORIDE
  12. FLUTICASONE PROPIONATE. [Concomitant]
     Active Substance: FLUTICASONE PROPIONATE
  13. SUPREP BOWEL PREP [Concomitant]
     Active Substance: MAGNESIUM SULFATE\POTASSIUM SULFATE\SODIUM SULFATE

REACTIONS (22)
  - Anaemia [Unknown]
  - Viral infection [Unknown]
  - Cardiac disorder [Unknown]
  - Catheter management [Unknown]
  - Transfusion [Unknown]
  - Chest pain [Unknown]
  - Catheter site inflammation [Unknown]
  - Heart valve replacement [Unknown]
  - Psychiatric evaluation [Unknown]
  - Fall [Unknown]
  - Pain [Unknown]
  - Hospitalisation [Unknown]
  - Catheter site pain [Unknown]
  - Catheter site swelling [Unknown]
  - Device dislocation [Unknown]
  - Cardiac valve disease [Unknown]
  - Dizziness [Unknown]
  - Oxygen saturation abnormal [Unknown]
  - Atrial fibrillation [Unknown]
  - Mental status changes [Unknown]
  - Cardiac flutter [Unknown]
  - Catheter site erythema [Unknown]

NARRATIVE: CASE EVENT DATE: 201801
